FAERS Safety Report 17694656 (Version 1)
Quarter: 2020Q2

REPORT INFORMATION
  Report Type: Spontaneous
  Country: US (occurrence: US)
  Receive Date: 20200422
  Receipt Date: 20200422
  Transmission Date: 20200714
  Serious: Yes (Hospitalization, Other)
  Sender: FDA-Public Use
  Company Number: US-JNJFOC-20200423185

PATIENT
  Age: 20 Year
  Sex: Female

DRUGS (5)
  1. DIGOXIN. [Concomitant]
     Active Substance: DIGOXIN
  2. XARELTO [Suspect]
     Active Substance: RIVAROXABAN
     Indication: PRODUCT USED FOR UNKNOWN INDICATION
     Route: 048
     Dates: start: 2019
  3. OPSUMIT [Concomitant]
     Active Substance: MACITENTAN
     Indication: PULMONARY ARTERIAL HYPERTENSION
     Route: 048
     Dates: start: 201906
  4. REMODULIN [Concomitant]
     Active Substance: TREPROSTINIL
     Dates: start: 201907
  5. TADALAFIL. [Concomitant]
     Active Substance: TADALAFIL
     Dates: start: 201906

REACTIONS (4)
  - Vaginal haemorrhage [Recovered/Resolved]
  - Transplant evaluation [Not Recovered/Not Resolved]
  - Hospitalisation [Unknown]
  - Menorrhagia [Unknown]

NARRATIVE: CASE EVENT DATE: 201908
